FAERS Safety Report 13488790 (Version 7)
Quarter: 2018Q2

REPORT INFORMATION
  Report Type: Spontaneous
  Country: GB (occurrence: GB)
  Receive Date: 20170427
  Receipt Date: 20180517
  Transmission Date: 20180711
  Serious: Yes (Other)
  Sender: FDA-Public Use
  Company Number: GB-AUROBINDO-AUR-APL-2017-32904

PATIENT
  Sex: Female

DRUGS (49)
  1. FABRAZYME [Suspect]
     Active Substance: AGALSIDASE BETA
     Dosage: 50MG (GIVEN AS 35MG + 15MG), FORTNIGHTLY35MG - C578H24, 30/11/201 8;15MG - E6002H01, 31/01/2019
     Route: 041
  2. COLECALCIFEROL [Suspect]
     Active Substance: CHOLECALCIFEROL
     Indication: PRODUCT USED FOR UNKNOWN INDICATION
     Dosage: 800U,DAILY ()
  3. CITALOPRAM FILM-COATED TABLET [Suspect]
     Active Substance: CITALOPRAM HYDROBROMIDE
     Indication: PRODUCT USED FOR UNKNOWN INDICATION
     Dosage: 10 MG, ONCE A DAY
     Route: 048
  4. FABRAZYME [Suspect]
     Active Substance: AGALSIDASE BETA
     Dosage: UNK ()
     Dates: start: 20171129
  5. LANSOPRAZOLE. [Suspect]
     Active Substance: LANSOPRAZOLE
     Route: 065
  6. LYRICA [Suspect]
     Active Substance: PREGABALIN
     Indication: PRODUCT USED FOR UNKNOWN INDICATION
     Dosage: 75 MG, 2X/DAY
     Route: 065
  7. NEBIVOLOL. [Suspect]
     Active Substance: NEBIVOLOL
     Indication: BLOOD PRESSURE MEASUREMENT
     Dosage: 2.5 MG, DAILY
     Route: 048
  8. COCODAMOL [Suspect]
     Active Substance: ACETAMINOPHEN\CODEINE PHOSPHATE
     Dosage: 30/500 MGS, 4X/DAY (QID)
     Route: 048
  9. FABRAZYME [Suspect]
     Active Substance: AGALSIDASE BETA
     Indication: PRODUCT USED FOR UNKNOWN INDICATION
     Dosage: 50MG (GIVEN AS 35MG + 15MG), FORTNIGHTLY
     Route: 041
  10. FABRAZYME [Suspect]
     Active Substance: AGALSIDASE BETA
     Dosage: 50 MG, EV 2 WEEKS(QOW)50MG (GIVEN AS 35MG + 15MG), FORTNIGHTLY35MG - C578H24, 30/11/201 8;15MG...
     Route: 041
  11. FABRAZYME [Suspect]
     Active Substance: AGALSIDASE BETA
     Dosage: UNK ()
     Dates: start: 20170404
  12. SALBUTAMOL [Suspect]
     Active Substance: ALBUTEROL
     Dosage: UNK ()
     Route: 065
  13. PERINDOPRIL [Suspect]
     Active Substance: PERINDOPRIL
     Indication: PRODUCT USED FOR UNKNOWN INDICATION
     Dosage: 4 MILLIGRAM
     Route: 048
  14. COCODAMOL [Suspect]
     Active Substance: ACETAMINOPHEN\CODEINE PHOSPHATE
     Indication: PRODUCT USED FOR UNKNOWN INDICATION
     Dosage: 30/500MGS
     Route: 065
  15. FABRAZYME [Suspect]
     Active Substance: AGALSIDASE BETA
     Dosage: UNK ()
     Dates: start: 20171213
  16. LYRICA [Suspect]
     Active Substance: PREGABALIN
     Dosage: 75 MG DAILY DOSE ()
  17. SALBUTAMOL [Suspect]
     Active Substance: ALBUTEROL
     Dosage: UNK ()
     Route: 065
  18. SALBUTAMOL [Suspect]
     Active Substance: ALBUTEROL
     Dosage: 2 DF, UNKFREQUENCY: EVERYROUTE: RESPIRATORY (INHALATION) DOSE:2 PUFF(S)
     Route: 055
  19. COLECALCIFEROL [Suspect]
     Active Substance: CHOLECALCIFEROL
     Dosage: 800 IU UNK, (1 DAY)
  20. PERINDOPRIL [Suspect]
     Active Substance: PERINDOPRIL
     Dosage: 4 MG, DAILY
     Route: 048
  21. COCODAMOL [Suspect]
     Active Substance: ACETAMINOPHEN\CODEINE PHOSPHATE
     Dosage: 30/500 MGS, 4X/DAY (QID)
     Route: 048
  22. COCODAMOL [Suspect]
     Active Substance: ACETAMINOPHEN\CODEINE PHOSPHATE
     Dosage: 30/500 MGS, 4X/DAY (QID)
     Route: 048
  23. COCODAMOL [Suspect]
     Active Substance: ACETAMINOPHEN\CODEINE PHOSPHATE
     Dosage: DOSE: 30/500MGS 4X DAILY
     Route: 048
  24. FABRAZYME [Suspect]
     Active Substance: AGALSIDASE BETA
     Dosage: 50MG (GIVEN AS 35MG + 15MG), FORTNIGHTLY35MG - C578H24, 30/11/201 8;15MG - E6002H01, 31/01/2019
     Route: 041
  25. FABRAZYME [Suspect]
     Active Substance: AGALSIDASE BETA
     Dosage: 50 MG, EV 2 WEEKS(QOW)
     Route: 041
  26. FABRAZYME [Suspect]
     Active Substance: AGALSIDASE BETA
     Dosage: 50 MG, EV 2 WEEKS(QOW)
     Route: 041
  27. ASPIRIN                            /00002701/ [Suspect]
     Active Substance: ASPIRIN
     Indication: PRODUCT USED FOR UNKNOWN INDICATION
     Dosage: 75 MG, ONCE A DAY
     Route: 065
  28. COCODAMOL [Suspect]
     Active Substance: ACETAMINOPHEN\CODEINE PHOSPHATE
     Dosage: 30/500 MG, 4X/DAY
     Route: 065
  29. COCODAMOL [Suspect]
     Active Substance: ACETAMINOPHEN\CODEINE PHOSPHATE
     Dosage: 1 DF, UNK
     Route: 048
  30. FABRAZYME [Suspect]
     Active Substance: AGALSIDASE BETA
     Dosage: 50 MG, EV 2 WEEKS(QOW)50MG (GIVEN AS 35MG + 15MG), FORTNIGHTLY35MG - C578H24, 30/11/201 8;15MG...
     Route: 041
  31. FABRAZYME [Suspect]
     Active Substance: AGALSIDASE BETA
     Dosage: UNK ()
     Dates: start: 20170206
  32. FABRAZYME [Suspect]
     Active Substance: AGALSIDASE BETA
     Dosage: UNK ()
     Dates: start: 20170320
  33. FABRAZYME [Suspect]
     Active Substance: AGALSIDASE BETA
     Dosage: 50 MG, EVERY OTHER WEEK (FORTNIGHTLY)
     Route: 041
  34. LANSOPRAZOLE. [Suspect]
     Active Substance: LANSOPRAZOLE
     Indication: PRODUCT USED FOR UNKNOWN INDICATION
     Dosage: 30 MG, DAILY
     Route: 048
  35. SALBUTAMOL [Suspect]
     Active Substance: ALBUTEROL
     Indication: COUGH
     Dosage: UNK
     Route: 065
  36. SALBUTAMOL [Suspect]
     Active Substance: ALBUTEROL
     Indication: PRODUCT USED FOR UNKNOWN INDICATION
     Dosage: 2 DOSAGE FORM, ONCE A DAY
     Route: 055
  37. AMIODARONE [Suspect]
     Active Substance: AMIODARONE
     Indication: PRODUCT USED FOR UNKNOWN INDICATION
     Dosage: 200 MILLIGRAM, DAILY
     Route: 065
  38. NEBIVOLOL. [Suspect]
     Active Substance: NEBIVOLOL
     Indication: BLOOD PRESSURE MEASUREMENT
     Dosage: 2.5 MG, DAILY
     Route: 065
  39. FABRAZYME [Suspect]
     Active Substance: AGALSIDASE BETA
     Dosage: UNK ()
     Dates: start: 20170220
  40. LANSOPRAZOLE. [Suspect]
     Active Substance: LANSOPRAZOLE
     Dosage: 30 MG DAILY ()
     Route: 048
  41. FULTIUM D3 [Suspect]
     Active Substance: CHOLECALCIFEROL
     Indication: PRODUCT USED FOR UNKNOWN INDICATION
     Dosage: 800 IU, DAILY
     Route: 065
  42. LYRICA [Suspect]
     Active Substance: PREGABALIN
     Dosage: UNK
  43. SALBUTAMOL [Suspect]
     Active Substance: ALBUTEROL
     Dosage: FREQUENCY: EVERYROUTE: RESPIRATORY (INHALATION) DOSE:2 PUFF(S) ()
     Route: 055
  44. CLOPIDOGREL ZENTIVA [Suspect]
     Active Substance: CLOPIDOGREL BISULFATE
     Indication: PRODUCT USED FOR UNKNOWN INDICATION
     Dosage: 75 MILLIGRAM, DAILY
  45. CLOPIDOGREL ZENTIVA [Suspect]
     Active Substance: CLOPIDOGREL BISULFATE
     Indication: PRODUCT USED FOR UNKNOWN INDICATION
     Dosage: 75 MG DAILY ()
  46. FABRAZYME [Suspect]
     Active Substance: AGALSIDASE BETA
     Dosage: UNK ()
     Route: 041
     Dates: end: 20170420
  47. LANSOPRAZOLE. [Suspect]
     Active Substance: LANSOPRAZOLE
     Dosage: 30 MG DAILY
  48. LYRICA [Suspect]
     Active Substance: PREGABALIN
     Route: 065
  49. SALBUTAMOL [Suspect]
     Active Substance: ALBUTEROL
     Dosage: 2 DF, DAILY DOSE
     Route: 055

REACTIONS (3)
  - Cough [Recovered/Resolved]
  - Wheezing [Unknown]
  - Lower respiratory tract infection [Unknown]
